FAERS Safety Report 13522597 (Version 2)
Quarter: 2017Q3

REPORT INFORMATION
  Report Type: Report from Study
  Country: US (occurrence: US)
  Receive Date: 20170508
  Receipt Date: 20170707
  Transmission Date: 20171127
  Serious: Yes (Hospitalization, Other)
  Sender: FDA-Public Use
  Company Number: US-SAOL THERAPEUTICS-2017SAO00824

PATIENT
  Age: 70 Year
  Sex: Male
  Weight: 95.24 kg

DRUGS (3)
  1. MARCAINE [Suspect]
     Active Substance: BUPIVACAINE HYDROCHLORIDE
     Route: 037
  2. HYDROMORPHONE [Suspect]
     Active Substance: HYDROMORPHONE
     Dosage: 1.7173 MG, \DAY
     Route: 037
     Dates: start: 20161223
  3. COMPOUNDED BACLOFEN [Suspect]
     Active Substance: BACLOFEN
     Dosage: 192.33 ?G, \DAY
     Route: 037
     Dates: start: 20161223

REACTIONS (4)
  - Overdose [Recovered/Resolved]
  - Device failure [Recovered/Resolved]
  - Depressed level of consciousness [Recovered/Resolved]
  - Urinary tract infection [Recovered/Resolved]

NARRATIVE: CASE EVENT DATE: 20160709
